FAERS Safety Report 12597034 (Version 2)
Quarter: 2016Q3

REPORT INFORMATION
  Report Type: Spontaneous
  Country: US (occurrence: US)
  Receive Date: 20160726
  Receipt Date: 20160914
  Transmission Date: 20161109
  Serious: Yes (Hospitalization, Other)
  Sender: FDA-Public Use
  Company Number: US-ASTRAZENECA-2016SE77941

PATIENT
  Age: 67 Year
  Sex: Male
  Weight: 120.2 kg

DRUGS (19)
  1. SIMVASTATIN. [Concomitant]
     Active Substance: SIMVASTATIN
  2. METFORMIN [Concomitant]
     Active Substance: METFORMIN HYDROCHLORIDE
  3. SERTRALINE [Concomitant]
     Active Substance: SERTRALINE HYDROCHLORIDE
  4. TRICOR [Concomitant]
     Active Substance: FENOFIBRATE
  5. ASPIRIN. [Concomitant]
     Active Substance: ASPIRIN
     Dosage: 325 MG, TABLET DEYALED RELEASE
  6. VYTORIN [Concomitant]
     Active Substance: EZETIMIBE\SIMVASTATIN
     Dosage: 10 MG - 20 MG
  7. PLAVIX [Concomitant]
     Active Substance: CLOPIDOGREL BISULFATE
  8. FASLODEX [Suspect]
     Active Substance: FULVESTRANT
     Indication: BREAST CANCER MALE
     Route: 030
     Dates: start: 2012
  9. IBRANCE [Suspect]
     Active Substance: PALBOCICLIB
     Indication: BREAST CANCER MALE
     Dosage: 125 MG, 28 DAYS SUPPLY
     Route: 048
  10. METOPROLOL. [Concomitant]
     Active Substance: METOPROLOL
  11. TAMOXIFEN [Suspect]
     Active Substance: TAMOXIFEN
     Indication: BREAST CANCER MALE
     Route: 048
     Dates: start: 2002, end: 2002
  12. COLACE [Concomitant]
     Active Substance: DOCUSATE SODIUM
  13. COREG [Concomitant]
     Active Substance: CARVEDILOL
  14. FOLIC ACID. [Concomitant]
     Active Substance: FOLIC ACID
  15. FUROSEMIDE. [Concomitant]
     Active Substance: FUROSEMIDE
  16. QUINAPRIL. [Concomitant]
     Active Substance: QUINAPRIL
  17. GLIMEPIRIDE. [Concomitant]
     Active Substance: GLIMEPIRIDE
  18. LETROZOLE. [Concomitant]
     Active Substance: LETROZOLE
  19. LANTUS [Concomitant]
     Active Substance: INSULIN GLARGINE
     Dosage: 100 IU/ML
     Route: 058

REACTIONS (17)
  - Acute coronary syndrome [Unknown]
  - Hot flush [Not Recovered/Not Resolved]
  - Nephropathy [Unknown]
  - Confusional state [Not Recovered/Not Resolved]
  - Dyspnoea [Not Recovered/Not Resolved]
  - Hallucination [Not Recovered/Not Resolved]
  - Metastases to lung [Unknown]
  - Oedema peripheral [Unknown]
  - Fatigue [Not Recovered/Not Resolved]
  - Neuropathy peripheral [Not Recovered/Not Resolved]
  - Malignant neoplasm progression [Unknown]
  - Deep vein thrombosis [Unknown]
  - Metastases to central nervous system [Unknown]
  - Cough [Not Recovered/Not Resolved]
  - Amnesia [Unknown]
  - Skin discolouration [Unknown]
  - Nephrogenic anaemia [Unknown]

NARRATIVE: CASE EVENT DATE: 2002
